FAERS Safety Report 7791833-2 (Version None)
Quarter: 2011Q4

REPORT INFORMATION
  Report Type: 
  Country: None (occurrence: None)
  Receive Date: 20111003
  Receipt Date: 20110927
  Transmission Date: 20120403
  Serious: No
  Sender: FDA-Public Use
  Company Number: US-PFIZER INC-2011230399

PATIENT
  Sex: Female
  Weight: 59 kg

DRUGS (3)
  1. CEPHALEXIN [Suspect]
     Indication: UPPER RESPIRATORY TRACT INFECTION
     Dosage: 500 MG, DAILY
     Dates: start: 20110801, end: 20110101
  2. DEPO-SUBQ PROVERA 104 [Interacting]
     Indication: CONTRACEPTION
     Dosage: 104 MG,
     Route: 058
     Dates: start: 20110804
  3. PRENATAL VITAMINS [Concomitant]
     Dosage: UNK

REACTIONS (4)
  - MENSTRUATION DELAYED [None]
  - DRUG INTERACTION [None]
  - DRUG INEFFECTIVE [None]
  - UNINTENDED PREGNANCY [None]
